FAERS Safety Report 17873390 (Version 1)
Quarter: 2020Q2

REPORT INFORMATION
  Report Type: Report from Study
  Country: None (occurrence: ES)
  Receive Date: 20200609
  Receipt Date: 20200609
  Transmission Date: 20200714
  Serious: Yes (Death, Other)
  Sender: FDA-Public Use
  Company Number: ES-ABBVIE-20K-144-3435766-00

PATIENT
  Age: 69 Year
  Sex: Female
  Weight: 75 kg

DRUGS (5)
  1. KALETRA [Suspect]
     Active Substance: LOPINAVIR\RITONAVIR
     Indication: COVID-19
     Route: 048
     Dates: start: 20200315, end: 20200322
  2. INTERFERON BETA-1B [Suspect]
     Active Substance: INTERFERON BETA-1B
     Indication: COVID-19
     Route: 058
     Dates: start: 20200315, end: 20200323
  3. AZITROMICINA [Suspect]
     Active Substance: AZITHROMYCIN DIHYDRATE
     Indication: COVID-19
     Route: 048
     Dates: start: 20200315, end: 20200318
  4. CEFTRIAXONA [Suspect]
     Active Substance: CEFTRIAXONE
     Indication: COVID-19
     Route: 042
     Dates: start: 20200317, end: 20200322
  5. CEFOTAXIMA [Concomitant]
     Active Substance: CEFOTAXIME SODIUM
     Indication: COVID-19
     Route: 042
     Dates: start: 20200315, end: 20200317

REACTIONS (2)
  - Hyperbilirubinaemia [Recovering/Resolving]
  - COVID-19 [Fatal]

NARRATIVE: CASE EVENT DATE: 20200321
